FAERS Safety Report 13517469 (Version 1)
Quarter: 2017Q2

REPORT INFORMATION
  Report Type: Spontaneous
  Country: US (occurrence: US)
  Receive Date: 20170505
  Receipt Date: 20170505
  Transmission Date: 20170830
  Serious: Yes (Hospitalization)
  Sender: FDA-Public Use
  Company Number: None

PATIENT
  Age: 66 Year
  Sex: Female
  Weight: 82 kg

DRUGS (7)
  1. SYNTHROID [Concomitant]
     Active Substance: LEVOTHYROXINE SODIUM
  2. ABILIFY [Concomitant]
     Active Substance: ARIPIPRAZOLE
  3. LISINOPRIL. [Concomitant]
     Active Substance: LISINOPRIL
  4. ESKALITH CR [Suspect]
     Active Substance: LITHIUM CARBONATE
  5. TOPROL XL MVI [Concomitant]
  6. OCUVITE [Concomitant]
     Active Substance: VITAMINS
  7. APAP [Concomitant]
     Active Substance: ACETAMINOPHEN

REACTIONS (3)
  - Acute kidney injury [None]
  - Hypernatraemia [None]
  - Toxicity to various agents [None]

NARRATIVE: CASE EVENT DATE: 20160913
